FAERS Safety Report 12593729 (Version 1)
Quarter: 2016Q3

REPORT INFORMATION
  Report Type: Spontaneous
  Country: US (occurrence: US)
  Receive Date: 20160726
  Receipt Date: 20160726
  Transmission Date: 20161109
  Serious: Yes (Other)
  Sender: FDA-Public Use
  Company Number: US-ABBVIE-16P-163-1666276-00

PATIENT

DRUGS (1)
  1. SYNTHROID [Suspect]
     Active Substance: LEVOTHYROXINE SODIUM
     Indication: PRODUCT USED FOR UNKNOWN INDICATION
     Route: 048

REACTIONS (20)
  - Sensory disturbance [Unknown]
  - Fat tissue increased [Unknown]
  - Alopecia [Unknown]
  - Anxiety [Unknown]
  - Muscular weakness [Unknown]
  - Erythema [Unknown]
  - Throat irritation [Unknown]
  - Memory impairment [Unknown]
  - Feeling jittery [Unknown]
  - Hormone level abnormal [Unknown]
  - Pruritus [Unknown]
  - Heart rate decreased [Unknown]
  - Fluid retention [Unknown]
  - Carpal tunnel syndrome [Unknown]
  - Feeling hot [Unknown]
  - Tremor [Unknown]
  - Weight increased [Unknown]
  - Fatigue [Unknown]
  - Dyspnoea [Unknown]
  - Burning sensation [Unknown]

NARRATIVE: CASE EVENT DATE: 201602
